FAERS Safety Report 7830639-2 (Version None)
Quarter: 2011Q4

REPORT INFORMATION
  Report Type: 
  Country: None (occurrence: None)
  Receive Date: 20111021
  Receipt Date: 20111010
  Transmission Date: 20120403
  Serious: Yes (Other)
  Sender: FDA-Public Use
  Company Number: NO-BAXTER-2011BH032906

PATIENT

DRUGS (10)
  1. PREDNISOLONE [Suspect]
     Indication: HODGKIN'S DISEASE
     Route: 048
  2. ETOPOSIDE [Suspect]
     Indication: HODGKIN'S DISEASE
     Route: 042
  3. VINCRISTINE SULFATE [Suspect]
     Indication: HODGKIN'S DISEASE
     Route: 042
  4. CYCLOPHOSPHAMIDE [Suspect]
     Route: 042
  5. PROCARBAZINE HYDROCHLORIDE [Suspect]
     Indication: HODGKIN'S DISEASE
     Route: 048
  6. CYCLOPHOSPHAMIDE [Suspect]
     Indication: HODGKIN'S DISEASE
     Route: 042
  7. BLEOMYCIN SULFATE [Suspect]
     Indication: HODGKIN'S DISEASE
     Route: 042
  8. ETOPOSIDE [Suspect]
     Route: 042
  9. DOXORUBICIN HCL [Suspect]
     Route: 042
  10. DOXORUBICIN HCL [Suspect]
     Indication: HODGKIN'S DISEASE
     Route: 042

REACTIONS (1)
  - POLYNEUROPATHY [None]
